FAERS Safety Report 20768641 (Version 2)
Quarter: 2022Q2

REPORT INFORMATION
  Report Type: Spontaneous
  Country: US (occurrence: US)
  Receive Date: 20220429
  Receipt Date: 20220507
  Transmission Date: 20220721
  Serious: No
  Sender: FDA-Public Use
  Company Number: US-SANOFI-01079160

PATIENT
  Age: 69 Year
  Sex: Male

DRUGS (4)
  1. LOVENOX [Suspect]
     Active Substance: ENOXAPARIN SODIUM
     Indication: Deep vein thrombosis
     Dosage: 87 MG, BID
  2. LOVENOX [Suspect]
     Active Substance: ENOXAPARIN SODIUM
     Indication: Pulmonary embolism
  3. XARELTO [Concomitant]
     Active Substance: RIVAROXABAN
  4. ELIQUIS [Concomitant]
     Active Substance: APIXABAN

REACTIONS (5)
  - Injection site induration [Unknown]
  - Injection site swelling [Unknown]
  - Rash [Recovered/Resolved]
  - Injection site pain [Unknown]
  - Product use issue [Unknown]
